FAERS Safety Report 5497910-3 (Version None)
Quarter: 2007Q4

REPORT INFORMATION
  Report Type: 
  Country: None (occurrence: None)
  Receive Date: 20071025
  Receipt Date: 20071015
  Transmission Date: 20080405
  Serious: Yes (Other)
  Sender: FDA-Public Use
  Company Number: US-PFIZER INC-2007087792

PATIENT
  Sex: Female
  Weight: 68.181 kg

DRUGS (6)
  1. CHANTIX [Suspect]
     Indication: SMOKING CESSATION THERAPY
  2. ALLEGRA [Concomitant]
  3. CALCIUM [Concomitant]
  4. ASCORBIC ACID [Concomitant]
  5. NIFEDIPINE [Concomitant]
     Indication: HYPERTENSION
  6. ETODOLAC [Concomitant]
     Indication: ARTHRITIS
     Route: 048

REACTIONS (5)
  - ASTHENIA [None]
  - DECREASED APPETITE [None]
  - FLATULENCE [None]
  - MOBILITY DECREASED [None]
  - NAUSEA [None]
